FAERS Safety Report 13237145 (Version 2)
Quarter: 2017Q1

REPORT INFORMATION
  Report Type: Report from Study
  Country: DE (occurrence: DE)
  Receive Date: 20170215
  Receipt Date: 20170329
  Transmission Date: 20170428
  Serious: Yes (Hospitalization)
  Sender: FDA-Public Use
  Company Number: DE-TEVA-740379USA

PATIENT
  Age: 72 Year
  Sex: Female
  Weight: 66.9 kg

DRUGS (13)
  1. RITUXIMAB [Suspect]
     Active Substance: RITUXIMAB
     Dosage: 21.4286 MILLIGRAM DAILY;
     Route: 042
     Dates: start: 20160211
  2. DELIX [Concomitant]
     Active Substance: RAMIPRIL
     Dates: start: 20161115
  3. EUTHYROX [Concomitant]
     Active Substance: LEVOTHYROXINE SODIUM
     Indication: HYPERTHYROIDISM
  4. TREANDA [Suspect]
     Active Substance: BENDAMUSTINE HYDROCHLORIDE
     Indication: NON-HODGKIN^S LYMPHOMA
     Dosage: 4.4 MILLIGRAM DAILY;
     Route: 042
     Dates: start: 20160211
  5. VENETOCLAX [Suspect]
     Active Substance: VENETOCLAX
     Indication: NON-HODGKIN^S LYMPHOMA
     Dosage: 1600 MILLIGRAM DAILY;
     Route: 048
     Dates: start: 20160211
  6. CIPROBAY [Concomitant]
     Active Substance: CIPROFLOXACIN
     Dates: start: 20161203
  7. REMERGIL [Concomitant]
     Active Substance: MIRTAZAPINE
     Indication: INSOMNIA
  8. PANTOZOL [Concomitant]
     Active Substance: PANTOPRAZOLE SODIUM
     Indication: GASTRIC DISORDER
     Dates: start: 20161116
  9. TILIDIN [Concomitant]
     Active Substance: NALOXONE HYDROCHLORIDE\TILIDINE HYDROCHLORIDE
     Dates: start: 20161115
  10. DEKRISTOL [Concomitant]
     Active Substance: CHOLECALCIFEROL
     Indication: PROPHYLAXIS
  11. TOREM [Concomitant]
     Active Substance: TORSEMIDE
     Indication: OEDEMA PERIPHERAL
     Dates: start: 20160801
  12. ACICLOVIR SODIUM [Concomitant]
     Indication: PROPHYLAXIS
     Dates: start: 20161115
  13. VIGANTOLETTEN [Concomitant]
     Active Substance: CHOLECALCIFEROL
     Indication: PROPHYLAXIS
     Dates: start: 20161116

REACTIONS (1)
  - Oesophageal candidiasis [Recovered/Resolved]

NARRATIVE: CASE EVENT DATE: 20170105
